FAERS Safety Report 13193033 (Version 3)
Quarter: 2017Q2

REPORT INFORMATION
  Report Type: Spontaneous
  Country: US (occurrence: US)
  Receive Date: 20170207
  Receipt Date: 20170425
  Transmission Date: 20170830
  Serious: No
  Sender: FDA-Public Use
  Company Number: US-GLAXOSMITHKLINE-US2017015890

PATIENT
  Age: 45 Year
  Sex: Female

DRUGS (1)
  1. NUCALA [Suspect]
     Active Substance: MEPOLIZUMAB
     Indication: ASTHMA
     Dosage: 100 MG, UNK
     Dates: start: 20161107, end: 20170109

REACTIONS (7)
  - Feeling abnormal [Unknown]
  - Headache [Unknown]
  - Fatigue [Unknown]
  - Decreased appetite [Unknown]
  - Condition aggravated [Unknown]
  - Dizziness [Unknown]
  - Body temperature decreased [Unknown]

NARRATIVE: CASE EVENT DATE: 20161107
